FAERS Safety Report 9969910 (Version 1)
Quarter: 2014Q1

REPORT INFORMATION
  Report Type: Spontaneous
  Country: US (occurrence: None)
  Receive Date: 20140305
  Receipt Date: 20140305
  Transmission Date: 20141002
  Serious: Yes (Death)
  Sender: FDA-Public Use
  Company Number: None

PATIENT
  Age: 66 Year
  Sex: Female
  Weight: 75 kg

DRUGS (6)
  1. SODIUM POLYSTYRENE SULFONATE (KAYEXALATE) [Suspect]
     Indication: HYPERKALAEMIA
     Route: 048
     Dates: start: 20130910, end: 20130910
  2. SORBITOL [Suspect]
  3. STEROIDS [Concomitant]
  4. N-ACETYLCYSTEINE [Concomitant]
  5. PRESSORS [Concomitant]
  6. BROAD-SPECTRUM ANTIBIOTICS [Concomitant]

REACTIONS (14)
  - Hypotension [None]
  - Acidosis [None]
  - Hyperkalaemia [None]
  - Aspartate aminotransferase increased [None]
  - Alanine aminotransferase increased [None]
  - Hepatic necrosis [None]
  - Shock [None]
  - Hepatic failure [None]
  - Cardiac failure [None]
  - Myocardial fibrosis [None]
  - Cardiac ventricular thrombosis [None]
  - Gastrointestinal necrosis [None]
  - Intestinal ulcer [None]
  - Gastrointestinal haemorrhage [None]
